FAERS Safety Report 11632825 (Version 1)
Quarter: 2015Q4

REPORT INFORMATION
  Report Type: Spontaneous
  Country: US (occurrence: US)
  Receive Date: 20151015
  Receipt Date: 20151015
  Transmission Date: 20160304
  Serious: Yes (Other)
  Sender: FDA-Public Use
  Company Number: US-GLAXOSMITHKLINE-US2015144652

PATIENT
  Age: 65 Year
  Sex: Female

DRUGS (7)
  1. ZYRTEC [Concomitant]
     Active Substance: CETIRIZINE HYDROCHLORIDE
  2. PROAIR HFA [Concomitant]
     Active Substance: ALBUTEROL SULFATE
  3. FLOVENT [Suspect]
     Active Substance: FLUTICASONE PROPIONATE
     Indication: BRONCHITIS
  4. ALBUTEROL WITH NEBULIZER [Concomitant]
  5. FLUTICASONE PROPIONATE NASAL SPRAY [Concomitant]
     Active Substance: FLUTICASONE PROPIONATE
  6. FLOVENT [Suspect]
     Active Substance: FLUTICASONE PROPIONATE
     Indication: ASTHMA
     Dosage: 2 PUFF(S), BID
     Route: 055
     Dates: start: 201502
  7. ZADITOR EYE DROPS [Concomitant]

REACTIONS (6)
  - Swelling [Recovered/Resolved]
  - Cyanosis [Recovered/Resolved]
  - Physical disability [Not Recovered/Not Resolved]
  - Hypoxia [Recovered/Resolved]
  - Drug ineffective [Not Recovered/Not Resolved]
  - Chest discomfort [Not Recovered/Not Resolved]

NARRATIVE: CASE EVENT DATE: 201502
